FAERS Safety Report 4284732-4 (Version None)
Quarter: 2004Q1

REPORT INFORMATION
  Report Type: 
  Country: None (occurrence: None)
  Receive Date: 20040130
  Receipt Date: 20040112
  Transmission Date: 20041129
  Serious: Yes (Hospitalization)
  Sender: FDA-Public Use
  Company Number: DE_031012203

PATIENT
  Age: 64 Year
  Sex: Male

DRUGS (2)
  1. ZYPREXA [Suspect]
     Indication: SCHIZOPHRENIA
     Dosage: 15 MG/DAY
     Dates: start: 20020801, end: 20030801
  2. PIPAMPERONE [Concomitant]

REACTIONS (9)
  - CHILLS [None]
  - DEHYDRATION [None]
  - FALL [None]
  - GAIT DISTURBANCE [None]
  - HYPERHIDROSIS [None]
  - PYREXIA [None]
  - RESTLESSNESS [None]
  - RHABDOMYOLYSIS [None]
  - TACHYCARDIA [None]
